FAERS Safety Report 4359705-3 (Version None)
Quarter: 2004Q2

REPORT INFORMATION
  Report Type: 
  Country: None (occurrence: None)
  Receive Date: 20040513
  Receipt Date: 20040427
  Transmission Date: 20050107
  Serious: Yes (Hospitalization)
  Sender: FDA-Public Use
  Company Number: 2004211526JP

PATIENT
  Age: 60 Year
  Sex: Male

DRUGS (1)
  1. MEDROL [Suspect]
     Indication: KIDNEY TRANSPLANT REJECTION
     Dosage: ORAL
     Route: 048
     Dates: end: 20010701

REACTIONS (6)
  - HAEMATURIA [None]
  - HAEMODIALYSIS [None]
  - RENAL CELL CARCINOMA STAGE UNSPECIFIED [None]
  - RENAL CYST [None]
  - RENAL TRANSPLANT [None]
  - TRANSPLANT REJECTION [None]
